FAERS Safety Report 24766775 (Version 1)
Quarter: 2024Q4

REPORT INFORMATION
  Report Type: Spontaneous
  Country: US (occurrence: US)
  Receive Date: 20241223
  Receipt Date: 20241223
  Transmission Date: 20250115
  Serious: Yes (Other)
  Sender: NOVO NORDISK
  Company Number: US-NOVOPROD-1336574

PATIENT
  Age: 60 Year
  Sex: Female

DRUGS (1)
  1. LEVEMIR [Suspect]
     Active Substance: INSULIN DETEMIR
     Indication: Type 2 diabetes mellitus
     Dosage: 32 IU, QD
     Route: 058

REACTIONS (9)
  - Leukaemia [Unknown]
  - Hypothyroidism [Unknown]
  - Blindness [Unknown]
  - Abdominal pain upper [Unknown]
  - Anaemia [Unknown]
  - Anxiety [Unknown]
  - Asthenia [Unknown]
  - Malaise [Unknown]
  - Sleep disorder [Unknown]

NARRATIVE: CASE EVENT DATE: 20240101
